FAERS Safety Report 14633061 (Version 4)
Quarter: 2018Q3

REPORT INFORMATION
  Report Type: Spontaneous
  Country: FR (occurrence: FR)
  Receive Date: 20180313
  Receipt Date: 20180822
  Transmission Date: 20181010
  Serious: Yes (Hospitalization)
  Sender: FDA-Public Use
  Company Number: FR-TEVA-2018-FR-867845

PATIENT
  Age: 35 Year
  Sex: Male

DRUGS (2)
  1. AMOXICILLIN. [Suspect]
     Active Substance: AMOXICILLIN
     Route: 048
     Dates: start: 20170722, end: 20170722
  2. AERIUS [Concomitant]
     Active Substance: DESLORATADINE

REACTIONS (7)
  - Asthenia [Recovered/Resolved]
  - Chills [Recovered/Resolved]
  - Abdominal pain [Recovered/Resolved]
  - Hypotension [Recovered/Resolved]
  - Dizziness [Recovered/Resolved]
  - Urticaria [Recovered/Resolved]
  - Vomiting [Recovered/Resolved]

NARRATIVE: CASE EVENT DATE: 20170722
